FAERS Safety Report 9169254 (Version 1)
Quarter: 2013Q1

REPORT INFORMATION
  Report Type: Spontaneous
  Country: JP (occurrence: JP)
  Receive Date: 20130318
  Receipt Date: 20130318
  Transmission Date: 20140127
  Serious: Yes (Other)
  Sender: FDA-Public Use
  Company Number: JP-ROCHE-1203084

PATIENT
  Age: 44 Year
  Sex: Female

DRUGS (6)
  1. TRASTUZUMAB [Suspect]
     Indication: BREAST CANCER
     Route: 065
  2. TAMOXIFEN [Suspect]
     Indication: BREAST CANCER
     Route: 065
  3. DOCETAXEL [Suspect]
     Indication: BREAST CANCER
     Route: 065
  4. VINORELBINE [Suspect]
     Indication: BREAST CANCER
     Route: 065
  5. GEMCITABINE [Suspect]
     Indication: BREAST CANCER
     Route: 065
  6. CISPLATIN [Suspect]
     Indication: BREAST CANCER
     Route: 065

REACTIONS (1)
  - Tumour lysis syndrome [Recovered/Resolved]
